FAERS Safety Report 16735907 (Version 1)
Quarter: 2019Q3

REPORT INFORMATION
  Report Type: Spontaneous
  Country: GB (occurrence: GB)
  Receive Date: 20190823
  Receipt Date: 20190823
  Transmission Date: 20191005
  Serious: Yes (Death, Other)
  Sender: FDA-Public Use
  Company Number: GB-MYLANLABS-2019M1078719

PATIENT
  Age: 41 Year
  Sex: Male
  Weight: 81 kg

DRUGS (4)
  1. PENICILLAMINE [Suspect]
     Active Substance: PENICILLAMINE
     Indication: PRODUCT USED FOR UNKNOWN INDICATION
     Dosage: 250 MILLIGRAM
     Dates: start: 20190308
  2. VENTOLIN [Concomitant]
     Active Substance: ALBUTEROL SULFATE
     Dosage: ONE OR TWO PUFFS UP TO FOUR TIMES...
     Route: 055
     Dates: start: 20180920, end: 20190304
  3. CLENIL MODULITE [Concomitant]
     Active Substance: BECLOMETHASONE DIPROPIONATE
     Dosage: ONE OR TWO PUFF TWICE DAILY
     Dates: start: 20180920, end: 20190304
  4. ACETYLSALICYLIC ACID [Concomitant]
     Active Substance: ASPIRIN
     Dosage: 1 DOSAGE FORM, QD
     Dates: start: 20150622, end: 20190304

REACTIONS (1)
  - Death [Fatal]

NARRATIVE: CASE EVENT DATE: 20190308
